FAERS Safety Report 4718579-9 (Version None)
Quarter: 2005Q3

REPORT INFORMATION
  Report Type: 
  Country: None (occurrence: None)
  Receive Date: 20050720
  Receipt Date: 20050620
  Transmission Date: 20060218
  Serious: Yes (Death)
  Sender: FDA-Public Use
  Company Number: 2005AP03422

PATIENT
  Age: 22733 Day
  Sex: Male
  Weight: 53 kg

DRUGS (8)
  1. IRESSA [Suspect]
     Indication: LUNG ADENOCARCINOMA
     Route: 048
     Dates: start: 20050513, end: 20050602
  2. RADIATION THERAPY [Concomitant]
     Dosage: 30 GY TO SACRAL SPINE
     Dates: start: 20050422, end: 20050511
  3. PRIMPERAN INJ [Concomitant]
     Route: 048
     Dates: start: 20050407
  4. MAGNESIUM OXIDE [Concomitant]
     Route: 048
     Dates: start: 20050407
  5. PURSENNID [Concomitant]
     Route: 048
     Dates: start: 20050407
  6. MAALOX [Concomitant]
     Route: 048
     Dates: start: 20050407
  7. OXYCONTIN [Concomitant]
     Route: 048
     Dates: start: 20050429
  8. DEPAS [Concomitant]
     Route: 048
     Dates: start: 20050429

REACTIONS (3)
  - COMPLETED SUICIDE [None]
  - DRUG INEFFECTIVE [None]
  - GUN SHOT WOUND [None]
